FAERS Safety Report 23824572 (Version 1)
Quarter: 2024Q2

REPORT INFORMATION
  Report Type: Report from Study
  Country: AR (occurrence: AR)
  Receive Date: 20240507
  Receipt Date: 20240507
  Transmission Date: 20240716
  Serious: Yes (Other)
  Sender: FDA-Public Use
  Company Number: AR-AMGEN-ARGSL2023118635

PATIENT
  Age: 42 Year
  Sex: Female

DRUGS (4)
  1. VECTIBIX [Suspect]
     Active Substance: PANITUMUMAB
     Indication: Colon cancer
     Dosage: UNK, Q2WK (BIWEEKLY)
     Route: 065
     Dates: start: 20230612, end: 2023
  2. VECTIBIX [Suspect]
     Active Substance: PANITUMUMAB
     Dosage: UNK, QMO
     Route: 065
     Dates: start: 2023
  3. VECTIBIX [Suspect]
     Active Substance: PANITUMUMAB
     Dosage: UNK UNK, Q2WK (14 DAYS), DOSE DECREASED
     Route: 065
  4. VECTIBIX [Suspect]
     Active Substance: PANITUMUMAB
     Dosage: UNK, 27 DAYS
     Route: 065

REACTIONS (6)
  - Ovarian cyst [Unknown]
  - Intestinal obstruction [Recovering/Resolving]
  - Dermatitis [Unknown]
  - Therapy change [Unknown]
  - Off label use [Unknown]
  - Tumour marker increased [Unknown]

NARRATIVE: CASE EVENT DATE: 20230101
